FAERS Safety Report 6430989-0 (Version None)
Quarter: 2009Q4

REPORT INFORMATION
  Report Type: 
  Country: None (occurrence: None)
  Receive Date: 20091106
  Receipt Date: 20091001
  Transmission Date: 20100525
  Serious: Yes (Other)
  Sender: FDA-Public Use
  Company Number: CA-BAYER-200832685GPV

PATIENT
  Age: 11 Month
  Sex: Male

DRUGS (13)
  1. HYDROCORTISONE [Suspect]
     Indication: DERMATITIS ATOPIC
     Dosage: UNIT DOSE: 0.2 %
     Route: 061
  2. HYDROCORTISONE [Suspect]
     Dosage: UNIT DOSE: 1 %
     Route: 061
  3. DESONIDE [Suspect]
     Indication: DERMATITIS ATOPIC
     Route: 061
  4. DESONIDE [Suspect]
     Dosage: UNIT DOSE: 0.05 %
     Route: 061
  5. CLOBETASOL PROPIONATE [Suspect]
     Indication: DERMATITIS ATOPIC
     Dosage: UNIT DOSE: 0.05 %
     Route: 061
  6. BETAMETHASONE [Suspect]
     Indication: DERMATITIS ATOPIC
     Dosage: UNIT DOSE: 0.05 %
     Route: 061
  7. BETAMETHASONE [Suspect]
     Route: 061
  8. MOMETASONE FUROATE [Suspect]
     Indication: DERMATITIS ATOPIC
     Route: 061
  9. MOMETASONE FUROATE [Suspect]
     Dosage: UNIT DOSE: 0.1 %
     Route: 061
  10. HYDROXYZINE [Concomitant]
     Indication: PRURITUS
     Route: 048
  11. DIPHENHYDRAMINE [Concomitant]
     Indication: PRURITUS
     Route: 048
  12. DOXEPIN HCL [Concomitant]
     Indication: PRURITUS
     Route: 048
  13. CEPHALEXIN [Concomitant]
     Indication: SUPERINFECTION
     Dosage: TOTAL DAILY DOSE: 375 MG
     Route: 048

REACTIONS (6)
  - ADRENAL SUPPRESSION [None]
  - CUSHING'S SYNDROME [None]
  - DERMATITIS ATOPIC [None]
  - GROWTH RETARDATION [None]
  - HYPERTENSION [None]
  - WEIGHT DECREASED [None]
